FAERS Safety Report 8533532-5 (Version None)
Quarter: 2012Q3

REPORT INFORMATION
  Report Type: 
  Country: None (occurrence: None)
  Receive Date: 20120724
  Receipt Date: 20120718
  Transmission Date: 20120928
  Serious: Yes (Other)
  Sender: FDA-Public Use
  Company Number: US-PFIZER INC-2012174843

PATIENT
  Sex: Female
  Weight: 90.703 kg

DRUGS (4)
  1. KLONOPIN [Concomitant]
     Dosage: UNK
  2. LAMICTAL [Suspect]
     Dosage: 100 MG, DAILY
  3. PRISTIQ [Suspect]
     Indication: DEPRESSION
     Dosage: UNK,DAILY
     Dates: start: 20120101
  4. LAMICTAL [Suspect]
     Indication: DEPRESSION
     Dosage: 50 MG, DAILY
     Dates: start: 20120101

REACTIONS (9)
  - PAIN OF SKIN [None]
  - CLOSTRIDIAL INFECTION [None]
  - CONTUSION [None]
  - SKIN DISCOLOURATION [None]
  - SKIN EXFOLIATION [None]
  - SKIN DISORDER [None]
  - PRURITUS [None]
  - SCAR [None]
  - HAIR DISORDER [None]
